FAERS Safety Report 12454261 (Version 2)
Quarter: 2016Q2

REPORT INFORMATION
  Report Type: Spontaneous
  Country: US (occurrence: US)
  Receive Date: 20160610
  Receipt Date: 20160623
  Transmission Date: 20160815
  Serious: Yes (Other)
  Sender: FDA-Public Use
  Company Number: US-PAR PHARMACEUTICAL COMPANIES-2016SCPR015506

PATIENT

DRUGS (5)
  1. VITAMIN D2 [Concomitant]
     Active Substance: ERGOCALCIFEROL
     Indication: OSTEOPOROSIS
     Dosage: 1 DF, WEEKLY, SINCE 5 YEARS
     Route: 048
  2. VITAMIN C [Concomitant]
     Active Substance: ASCORBIC ACID
     Indication: SUPPLEMENTATION THERAPY
     Dosage: 1 DF, OD, SINCE 4 YEARS
     Route: 048
  3. FISH OIL                           /00492901/ [Concomitant]
     Active Substance: COD LIVER OIL
     Indication: SUPPLEMENTATION THERAPY
     Dosage: 1 DF, OD, SINCE 2 YEARS
     Route: 048
  4. ENERGY AND FAT METABOLISM FACTORS [Concomitant]
     Indication: SUPPLEMENTATION THERAPY
     Dosage: 2 DF, OD
     Route: 048
     Dates: start: 201602
  5. AMLODIPINE BESYLATE + VALSARTAN [Suspect]
     Active Substance: AMLODIPINE BESYLATE\VALSARTAN
     Indication: HYPERTENSION
     Dosage: 1 DF, OD
     Route: 048
     Dates: start: 20160520, end: 20160531

REACTIONS (5)
  - Blood pressure fluctuation [Unknown]
  - Diarrhoea [Unknown]
  - Peripheral swelling [Not Recovered/Not Resolved]
  - Pollakiuria [Not Recovered/Not Resolved]
  - Muscle spasms [Unknown]

NARRATIVE: CASE EVENT DATE: 201605
